FAERS Safety Report 7600645-1 (Version None)
Quarter: 2011Q2

REPORT INFORMATION
  Report Type: 
  Country: None (occurrence: None)
  Receive Date: 20110629
  Receipt Date: 20110622
  Transmission Date: 20111010
  Serious: Yes (Hospitalization)
  Sender: FDA-Public Use
  Company Number: TRP_07785_2011

PATIENT
  Age: 47 Year
  Sex: Male

DRUGS (2)
  1. RIBAVIRIN [Suspect]
     Indication: HEPATITIS C
     Dosage: (DF)
  2. PEGINTERFERON (PEGYLATED-INTERFERON) [Suspect]
     Indication: HEPATITIS C
     Dosage: (DF)

REACTIONS (5)
  - ANXIETY [None]
  - DELUSION OF REFERENCE [None]
  - DISINHIBITION [None]
  - INSOMNIA [None]
  - IRRITABILITY [None]
